FAERS Safety Report 4337148-6 (Version None)
Quarter: 2004Q2

REPORT INFORMATION
  Report Type: 
  Country: None (occurrence: None)
  Receive Date: 20040407
  Receipt Date: 20040326
  Transmission Date: 20050107
  Serious: No
  Sender: FDA-Public Use
  Company Number: 04P-163-0254911-00

PATIENT
  Age: 76 Year
  Sex: Female
  Weight: 81.6475 kg

DRUGS (10)
  1. HUMIRA [Suspect]
     Indication: RHEUMATOID ARTHRITIS
     Dosage: 40 MG, 1 IN 2 WK, INTRAMUSCULAR
     Route: 030
     Dates: start: 20031001, end: 20040101
  2. HUMIRA [Suspect]
     Indication: RHEUMATOID ARTHRITIS
     Dosage: 40 MG, 1 IN 2 WK, INTRAMUSCULAR
     Route: 030
     Dates: start: 20040318
  3. DILTIAZEM HYDROCHLORIDE [Concomitant]
  4. ATENOLOL [Concomitant]
  5. FOLTEX [Concomitant]
  6. METHOTREXATE [Concomitant]
  7. OCUVITE [Concomitant]
  8. ETRAFON-D [Concomitant]
  9. CALCIUIM [Concomitant]
  10. ASPIRIN [Concomitant]

REACTIONS (2)
  - FALL [None]
  - HAND FRACTURE [None]
